FAERS Safety Report 4663251-7 (Version None)
Quarter: 2005Q2

REPORT INFORMATION
  Report Type: 
  Country: None (occurrence: None)
  Receive Date: 20050513
  Receipt Date: 20050504
  Transmission Date: 20051028
  Serious: Yes (Life-Threatening, Hospitalization, Disabling, Other)
  Sender: FDA-Public Use
  Company Number: 2004065552

PATIENT
  Age: 49 Year
  Sex: Male

DRUGS (11)
  1. NEURONTIN [Suspect]
     Indication: NEUROPATHY
     Dosage: 300MG (100 MG, 3 IN 1 D),
     Dates: start: 20000701
  2. CLONAZEPAM [Suspect]
     Indication: PAIN
     Dosage: 1 MG (0.5 MG, 2 IN 1 D), UNKNOWN
  3. OXYCODONE HYDROCHLORIDE AND ACETAMINOPHEN [Suspect]
     Indication: PAIN
     Dosage: 3 TABLETS (3 IN1 D), UNKNOWN
  4. VICODIN [Suspect]
     Indication: PAIN
     Dosage: 60 MG (10 MG, 1 IN 4 HR), UNKNOWN
  5. PANTOPRAZOLE SODIUM [Concomitant]
  6. LATANOPROST [Concomitant]
  7. ESOMEPRAZOLE (ESOMEPRAZOLE) [Concomitant]
  8. GEMFIBROZIL [Concomitant]
  9. PRAVASTATIN SODIUM [Concomitant]
  10. FLUTICASONE PROPIONATE [Concomitant]
  11. GAVISCON [Concomitant]

REACTIONS (21)
  - ABDOMINAL PAIN [None]
  - ABDOMINAL TENDERNESS [None]
  - CANDIDIASIS [None]
  - COAGULOPATHY [None]
  - DISABILITY [None]
  - DRUG INEFFECTIVE [None]
  - GASTROINTESTINAL INJURY [None]
  - GUN SHOT WOUND [None]
  - HAEMORRHAGE [None]
  - HAEMOTHORAX [None]
  - HYPOTENSION [None]
  - MAJOR DEPRESSION [None]
  - MENTAL DISORDER [None]
  - OVERDOSE [None]
  - PAIN [None]
  - POLYTRAUMATISM [None]
  - POST PROCEDURAL COMPLICATION [None]
  - POSTOPERATIVE ABSCESS [None]
  - SPLENIC INJURY [None]
  - STAPHYLOCOCCAL INFECTION [None]
  - SUICIDE ATTEMPT [None]
